FAERS Safety Report 7424248-7 (Version None)
Quarter: 2011Q2

REPORT INFORMATION
  Report Type: 
  Country: None (occurrence: None)
  Receive Date: 20110411
  Receipt Date: 20110331
  Transmission Date: 20111010
  Serious: Yes (Hospitalization)
  Sender: FDA-Public Use
  Company Number: IE-005061

PATIENT
  Sex: Male

DRUGS (1)
  1. DEGARELIX (FIRMAGON) 80 MG [Suspect]
     Indication: PROSTATE CANCER
     Dosage: (SUBCUTANEOUS)
     Route: 058
     Dates: start: 20091112

REACTIONS (1)
  - BREAST MASS [None]
